FAERS Safety Report 4287409-4 (Version None)
Quarter: 2004Q1

REPORT INFORMATION
  Report Type: 
  Country: None (occurrence: None)
  Receive Date: 20040205
  Receipt Date: 20040121
  Transmission Date: 20041129
  Serious: Yes (Other)
  Sender: FDA-Public Use
  Company Number: 2004-DE-00543BY(0)

PATIENT
  Age: 71 Year
  Sex: Male

DRUGS (3)
  1. MICARDIS [Suspect]
     Indication: HYPERTENSION
     Dosage: 92.5 MG PO
     Route: 048
     Dates: start: 20030919, end: 20031201
  2. LASIX P (NR) [Concomitant]
  3. ALDACTAZINE (ALDACTAZINE) (NR) [Concomitant]

REACTIONS (2)
  - MENTAL DISORDER [None]
  - SUICIDAL IDEATION [None]
